FAERS Safety Report 13917784 (Version 2)
Quarter: 2017Q3

REPORT INFORMATION
  Report Type: Spontaneous
  Country: RU (occurrence: RU)
  Receive Date: 20170829
  Receipt Date: 20170929
  Transmission Date: 20171127
  Serious: Yes (Other)
  Sender: FDA-Public Use
  Company Number: RU-CORDEN PHARMA LATINA S.P.A.-RU-2017COR000175

PATIENT
  Sex: Male
  Weight: 78 kg

DRUGS (4)
  1. CARBOPLATIN. [Suspect]
     Active Substance: CARBOPLATIN
     Indication: NON-HODGKIN^S LYMPHOMA
     Dosage: 800 MG, UNK
     Dates: start: 20100319, end: 20100319
  2. RITUXIMAB. [Suspect]
     Active Substance: RITUXIMAB
     Indication: NON-HODGKIN^S LYMPHOMA
     Dosage: UNK
  3. ETOPOSIDE. [Suspect]
     Active Substance: ETOPOSIDE
     Indication: NON-HODGKIN^S LYMPHOMA
     Dosage: 200 MG, UNK
     Route: 065
     Dates: start: 20100318, end: 20100320
  4. IFOSFAMIDE. [Suspect]
     Active Substance: IFOSFAMIDE
     Indication: NON-HODGKIN^S LYMPHOMA
     Dosage: UNK

REACTIONS (2)
  - Sepsis [Recovering/Resolving]
  - Systemic inflammatory response syndrome [Recovering/Resolving]
